FAERS Safety Report 23524027 (Version 1)
Quarter: 2024Q1

REPORT INFORMATION
  Report Type: Spontaneous
  Country: CA (occurrence: CA)
  Receive Date: 20240214
  Receipt Date: 20240214
  Transmission Date: 20240410
  Serious: Yes (Other)
  Sender: FDA-Public Use
  Company Number: CA-002147023-NVSC2024CA031563

PATIENT
  Age: 84 Year
  Sex: Female

DRUGS (3)
  1. OCTREOTIDE [Suspect]
     Active Substance: OCTREOTIDE\OCTREOTIDE ACETATE
     Indication: Carcinoid tumour
     Dosage: 20 MG (1 EVERY 4 WEEKS)
     Route: 030
  2. OCTREOTIDE [Suspect]
     Active Substance: OCTREOTIDE\OCTREOTIDE ACETATE
     Dosage: 10 MG (1 EVERY 4 WEEKS)
     Route: 030
  3. OCTREOTIDE [Suspect]
     Active Substance: OCTREOTIDE\OCTREOTIDE ACETATE
     Dosage: 30 MG (1 EVERY 4 WEEKS)
     Route: 030

REACTIONS (2)
  - Loss of consciousness [Recovered/Resolved]
  - Asthenia [Recovered/Resolved]
